FAERS Safety Report 8304943-8 (Version None)
Quarter: 2012Q2

REPORT INFORMATION
  Report Type: 
  Country: None (occurrence: None)
  Receive Date: 20120411
  Receipt Date: 20120403
  Transmission Date: 20120825
  Serious: Yes (Death, Hospitalization)
  Sender: FDA-Public Use
  Company Number: THYM-1001041

PATIENT
  Age: 60 Year
  Sex: Female

DRUGS (30)
  1. ATENOLOL [Concomitant]
  2. PRILOSEC [Concomitant]
  3. KLOR-CON [Concomitant]
  4. ACYCLOVIR [Concomitant]
  5. IMMUNE CELLS HUMAN [Concomitant]
  6. IMMUNE CELLS HUMAN [Concomitant]
  7. MORPHINE [Concomitant]
  8. FLUCONAZOLE [Concomitant]
  9. TOTAL LYMPHOID IRRADIATION (TOTAL LYMPHOID IRRADIATION) [Concomitant]
  10. LORAZEPAM [Concomitant]
  11. TRIAMCINOLONE ACETONIDE [Concomitant]
  12. DEXAMETHASONE [Concomitant]
  13. LORAZEPAM [Concomitant]
  14. NIFEDIPINE [Concomitant]
  15. ONDANSETRON [Concomitant]
  16. LIDOCAINE [Concomitant]
  17. THYMOGLOBULIN [Suspect]
     Indication: BONE MARROW CONDITIONING REGIMEN
     Dosage: 1.5 MG/KG, QD, INTRAVENOUS
     Route: 042
     Dates: start: 20080101, end: 20080101
  18. ACYCLOVIR [Concomitant]
  19. ALBUTEROL [Concomitant]
  20. LEVOTHYROXINE SODIUM [Concomitant]
  21. ACETAMINOPHEN [Concomitant]
  22. KETAMINE HCL [Concomitant]
  23. DOCUSATE SODIUM (DOCUSATE SODIUM) [Concomitant]
  24. PROCHLORPERAZINE MALEATE [Concomitant]
  25. RANITIDINE HYDROCHLORIDE [Concomitant]
  26. POTASSIUM CHLORIDE [Concomitant]
  27. SENNA (SENNA ALEXANDRINA) TABLET [Concomitant]
  28. NEBUPENT [Concomitant]
  29. LENALIDOMIDE [Concomitant]
  30. IMMUNE CELLS HUMAN [Concomitant]

REACTIONS (4)
  - MULTIPLE MYELOMA [None]
  - GRAFT VERSUS HOST DISEASE IN INTESTINE [None]
  - ESCHERICHIA URINARY TRACT INFECTION [None]
  - NEOPLASM PROGRESSION [None]
